FAERS Safety Report 15112337 (Version 1)
Quarter: 2018Q3

REPORT INFORMATION
  Report Type: Spontaneous
  Country: ES (occurrence: ES)
  Receive Date: 20180705
  Receipt Date: 20180705
  Transmission Date: 20181010
  Serious: Yes (Hospitalization)
  Sender: FDA-Public Use
  Company Number: ES-ELI_LILLY_AND_COMPANY-ES201806014353

PATIENT
  Age: 49 Year
  Sex: Male

DRUGS (4)
  1. TARGIN [Interacting]
     Active Substance: NALOXONE HYDROCHLORIDE\OXYCODONE HYDROCHLORIDE
     Indication: NEURALGIA
     Dosage: 120 MG, UNKNOWN
     Route: 048
     Dates: start: 20160218, end: 20160223
  2. DULOXETINE HYDROCHLORIDE. [Suspect]
     Active Substance: DULOXETINE HYDROCHLORIDE
     Indication: NEURALGIA
     Dosage: 60 MG, UNKNOWN
     Route: 048
     Dates: start: 20160216, end: 20160223
  3. SINOGAN                            /00038602/ [Interacting]
     Active Substance: LEVOMEPROMAZINE MALEATE
     Indication: ANXIETY
     Dosage: 37.5 MG, UNKNOWN
     Route: 030
     Dates: start: 20160217, end: 20160223
  4. LORAZEPAM. [Concomitant]
     Active Substance: LORAZEPAM
     Indication: INSOMNIA
     Dosage: 1 MG, UNKNOWN
     Route: 048

REACTIONS (2)
  - Hallucination [Recovered/Resolved]
  - Dysphoria [Recovered/Resolved]

NARRATIVE: CASE EVENT DATE: 20160220
